FAERS Safety Report 19295766 (Version 1)
Quarter: 2021Q2

REPORT INFORMATION
  Report Type: Spontaneous
  Country: ES (occurrence: ES)
  Receive Date: 20210524
  Receipt Date: 20210524
  Transmission Date: 20210717
  Serious: Yes (Hospitalization)
  Sender: FDA-Public Use
  Company Number: ES-PFIZER INC-2021533026

PATIENT
  Age: 63 Year
  Sex: Female

DRUGS (1)
  1. CARBOPLATINO PHARMACIA [Suspect]
     Active Substance: CARBOPLATIN
     Indication: OVARIAN CANCER
     Dosage: 645 MG
     Route: 041
     Dates: start: 20210504, end: 20210504

REACTIONS (7)
  - Diarrhoea [Recovering/Resolving]
  - Nausea [Recovering/Resolving]
  - Hypotension [Recovering/Resolving]
  - Choking sensation [Recovering/Resolving]
  - Flushing [Recovering/Resolving]
  - Muscle rigidity [Recovering/Resolving]
  - Infusion related reaction [Recovering/Resolving]

NARRATIVE: CASE EVENT DATE: 20210504
